FAERS Safety Report 7644060-3 (Version None)
Quarter: 2011Q3

REPORT INFORMATION
  Report Type: 
  Country: None (occurrence: None)
  Receive Date: 20110729
  Receipt Date: 20110718
  Transmission Date: 20111222
  Serious: Yes (Hospitalization)
  Sender: FDA-Public Use
  Company Number: US-JNJFOC-20110707565

PATIENT
  Sex: Female
  Weight: 54.89 kg

DRUGS (7)
  1. CHOLESTYRAMINE [Concomitant]
     Indication: BOWEL MOVEMENT IRREGULARITY
     Route: 048
  2. REMICADE [Suspect]
     Indication: CROHN'S DISEASE
     Route: 042
     Dates: start: 20101001
  3. NAPRELAN [Concomitant]
     Indication: CROHN'S DISEASE
     Route: 048
  4. APRISO [Concomitant]
     Indication: CROHN'S DISEASE
     Route: 048
  5. VITAMIN D [Concomitant]
     Indication: CROHN'S DISEASE
     Route: 048
  6. CALCIUM ACETATE [Concomitant]
     Indication: CROHN'S DISEASE
     Route: 048
  7. PROTONIX [Concomitant]
     Indication: CROHN'S DISEASE
     Route: 048

REACTIONS (7)
  - DRUG INEFFECTIVE [None]
  - RHEUMATOID ARTHRITIS [None]
  - OEDEMA PERIPHERAL [None]
  - CROHN'S DISEASE [None]
  - VOMITING [None]
  - ABNORMAL LOSS OF WEIGHT [None]
  - JOINT SWELLING [None]
